FAERS Safety Report 5931949-6 (Version None)
Quarter: 2008Q4

REPORT INFORMATION
  Report Type: 
  Country: None (occurrence: None)
  Receive Date: 20081027
  Receipt Date: 20081020
  Transmission Date: 20090506
  Serious: Yes (Hospitalization)
  Sender: FDA-Public Use
  Company Number: PHHY2008GB25853

PATIENT

DRUGS (1)
  1. TEGRETOL [Suspect]

REACTIONS (2)
  - DYSPHAGIA [None]
  - SURGERY [None]
